FAERS Safety Report 13089040 (Version 1)
Quarter: 2017Q1

REPORT INFORMATION
  Report Type: Spontaneous
  Country: US (occurrence: US)
  Receive Date: 20170105
  Receipt Date: 20170105
  Transmission Date: 20170428
  Serious: Yes (Other)
  Sender: FDA-Public Use
  Company Number: None

PATIENT
  Age: 61 Year
  Sex: Female
  Weight: 61.29 kg

DRUGS (5)
  1. LEVOTHYROXINE. [Suspect]
     Active Substance: LEVOTHYROXINE
     Indication: THYROID DISORDER
     Dosage: ?          QUANTITY:L LRRLL;?
     Route: 048
     Dates: start: 20000615
  2. METFORMIN [Concomitant]
     Active Substance: METFORMIN HYDROCHLORIDE
  3. CHILDREN^S ASPRIN [Concomitant]
  4. CENTRUM [Concomitant]
     Active Substance: VITAMINS
  5. GARLIC. [Concomitant]
     Active Substance: GARLIC

REACTIONS (2)
  - Alopecia [None]
  - Pruritus [None]

NARRATIVE: CASE EVENT DATE: 20000716
